FAERS Safety Report 6781895-3 (Version None)
Quarter: 2010Q2

REPORT INFORMATION
  Report Type: 
  Country: None (occurrence: None)
  Receive Date: 20100621
  Receipt Date: 20100611
  Transmission Date: 20101027
  Serious: Yes (Other)
  Sender: FDA-Public Use
  Company Number: GXKR2010IT06482

PATIENT
  Age: 25 Year
  Sex: Male

DRUGS (5)
  1. AMISULPRIDE (NGX) [Interacting]
     Indication: MENTAL DISORDER
     Dosage: 200 MG/DAY
     Route: 065
  2. METFORMIN HCL [Suspect]
     Indication: HYPERINSULINAEMIA
     Dosage: 500 MG, TID
     Route: 065
     Dates: start: 20080601
  3. BENZODIAZEPINES [Concomitant]
     Indication: PSYCHIATRIC SYMPTOM
  4. SSRI [Concomitant]
     Indication: PSYCHIATRIC SYMPTOM
  5. TRICYCLIC ANTIDEPRESSANTS [Concomitant]
     Indication: PSYCHIATRIC SYMPTOM

REACTIONS (3)
  - DRUG INTERACTION [None]
  - MUSCULAR WEAKNESS [None]
  - RHABDOMYOLYSIS [None]
